FAERS Safety Report 5842164-9 (Version None)
Quarter: 2008Q3

REPORT INFORMATION
  Report Type: 
  Country: None (occurrence: None)
  Receive Date: 20080812
  Receipt Date: 20080729
  Transmission Date: 20090109
  Serious: Yes (Other)
  Sender: FDA-Public Use
  Company Number: US-ELI_LILLY_AND_COMPANY-US200807005843

PATIENT
  Sex: Female

DRUGS (1)
  1. FORTEO [Suspect]
     Dates: start: 20070101

REACTIONS (4)
  - CONTUSION [None]
  - FALL [None]
  - JOINT INJURY [None]
  - TRANSIENT ISCHAEMIC ATTACK [None]
